FAERS Safety Report 8877139 (Version 1)
Quarter: 2012Q4

REPORT INFORMATION
  Report Type: Spontaneous
  Country: US (occurrence: None)
  Receive Date: 20121026
  Receipt Date: 20121026
  Transmission Date: 20130627
  Serious: Yes (Other)
  Sender: FDA-Public Use
  Company Number: 20120641

PATIENT
  Age: 22 Year
  Sex: Female

DRUGS (5)
  1. VASOPRESSIN [Suspect]
     Indication: BLEEDING
     Dosage: 20 u/mL intracervical
     Dates: start: 20120928, end: 20120928
  2. SODIUM BICARBONATE [Suspect]
     Dosage: 1 cc intracervical
     Dates: start: 20120928, end: 20120928
  3. MIDAZOLAM HCL [Suspect]
     Dosage: 2 mg/2mL
     Dates: start: 20120928, end: 20120928
  4. FENTANYL CITRATE [Suspect]
     Dosage: 100 mcg/2mL
     Dates: start: 20120928, end: 20120928
  5. LIDOCAINE [Suspect]
     Dates: start: 20120928, end: 20120928

REACTIONS (5)
  - Dyspnoea [None]
  - Respiratory disorder [None]
  - Off label use [None]
  - Product quality issue [None]
  - Vocal cord paralysis [None]
